FAERS Safety Report 13680945 (Version 2)
Quarter: 2017Q3

REPORT INFORMATION
  Report Type: Report from Study
  Country: US (occurrence: US)
  Receive Date: 20170623
  Receipt Date: 20170706
  Transmission Date: 20171127
  Serious: Yes (Other)
  Sender: FDA-Public Use
  Company Number: US-UCBSA-2017020031

PATIENT
  Sex: Female
  Weight: 56 kg

DRUGS (3)
  1. LEVETIRACETAM. [Suspect]
     Active Substance: LEVETIRACETAM
     Indication: EPILEPSY
     Dosage: 500 MG, 2X/DAY (BID)
     Route: 048
     Dates: start: 201704, end: 2017
  2. LEVETIRACETAM. [Suspect]
     Active Substance: LEVETIRACETAM
     Dosage: 1000 MG IN THE MORNING AND 1500 MG AT NIGHT, 2X/DAY (BID)
     Route: 048
     Dates: start: 2017, end: 2017
  3. LEVETIRACETAM. [Suspect]
     Active Substance: LEVETIRACETAM
     Indication: SEIZURE
     Dosage: 1000 MG, 2X/DAY (BID)
     Route: 048
     Dates: start: 2017, end: 2017

REACTIONS (5)
  - Seizure [Recovered/Resolved]
  - Malaise [Unknown]
  - Off label use [Unknown]
  - Depression [Recovered/Resolved]
  - Dizziness [Unknown]

NARRATIVE: CASE EVENT DATE: 2017
